FAERS Safety Report 7956774-6 (Version None)
Quarter: 2011Q4

REPORT INFORMATION
  Report Type: 
  Country: None (occurrence: None)
  Receive Date: 20111205
  Receipt Date: 20111130
  Transmission Date: 20120403
  Serious: Yes (Hospitalization, Other)
  Sender: FDA-Public Use
  Company Number: GB-SHIRE-ALL1-2011-03749

PATIENT
  Sex: Male

DRUGS (1)
  1. AGALSIDASE ALFA [Suspect]
     Indication: FABRY'S DISEASE
     Dosage: 14 MG, 1X/2WKS
     Route: 041
     Dates: start: 19980101

REACTIONS (5)
  - CEREBROVASCULAR ACCIDENT [None]
  - TREATMENT NONCOMPLIANCE [None]
  - CONFUSIONAL STATE [None]
  - DEPRESSION [None]
  - SUDDEN VISUAL LOSS [None]
